FAERS Safety Report 5638466-1 (Version None)
Quarter: 2008Q1

REPORT INFORMATION
  Report Type: 
  Country: None (occurrence: None)
  Receive Date: 20080226
  Receipt Date: 20080215
  Transmission Date: 20080703
  Serious: Yes (Other)
  Sender: FDA-Public Use
  Company Number: DE-GENENTECH-244413

PATIENT
  Sex: Male

DRUGS (2)
  1. LUCENTIS [Suspect]
     Indication: MACULAR DEGENERATION
     Dosage: 1 DF, 1/MONTH
     Route: 031
     Dates: start: 20070328
  2. AUGMENTIN '125' [Suspect]
     Indication: DENTAL TREATMENT
     Dosage: UNK, UNKNOWN
     Route: 065

REACTIONS (2)
  - DERMATITIS [None]
  - SARCOIDOSIS [None]
